FAERS Safety Report 4361485-2 (Version None)
Quarter: 2004Q2

REPORT INFORMATION
  Report Type: 
  Country: None (occurrence: None)
  Receive Date: 20040521
  Receipt Date: 20030902
  Transmission Date: 20050107
  Serious: No
  Sender: FDA-Public Use
  Company Number: US-GLAXOSMITHKLINE-A0424327A

PATIENT
  Age: 34 Year
  Sex: Female

DRUGS (2)
  1. ZYBAN [Suspect]
     Dosage: 150MG TWICE PER DAY
     Route: 048
     Dates: start: 20030801
  2. MULTIVITAMIN [Concomitant]

REACTIONS (2)
  - LOCAL SWELLING [None]
  - PRURITUS [None]
